FAERS Safety Report 17011056 (Version 3)
Quarter: 2019Q4

REPORT INFORMATION
  Report Type: Report from Study
  Country: US (occurrence: US)
  Receive Date: 20191108
  Receipt Date: 20191202
  Transmission Date: 20200122
  Serious: Yes (Death)
  Sender: FDA-Public Use
  Company Number: US-PFIZER INC-2019484983

PATIENT
  Age: 79 Year
  Sex: Female

DRUGS (4)
  1. IBUPROFEN. [Suspect]
     Active Substance: IBUPROFEN
     Dosage: UNK
     Dates: start: 2018
  2. CARVEDILOL. [Suspect]
     Active Substance: CARVEDILOL
     Dosage: UNK
     Dates: start: 2018
  3. AMIODARONE HCL [Suspect]
     Active Substance: AMIODARONE HYDROCHLORIDE
     Dosage: UNK
     Dates: start: 2018
  4. APIXABAN [Suspect]
     Active Substance: APIXABAN
     Dosage: UNK
     Dates: start: 2018

REACTIONS (11)
  - Depressed level of consciousness [Fatal]
  - Hypotension [Fatal]
  - Bradycardia [Fatal]
  - Acute kidney injury [Fatal]
  - Coagulopathy [Fatal]
  - Ventricular dysfunction [Fatal]
  - Coma [Fatal]
  - Gastrointestinal haemorrhage [Fatal]
  - Myocardial ischaemia [Fatal]
  - Respiratory depression [Fatal]
  - Toxicity to various agents [Fatal]

NARRATIVE: CASE EVENT DATE: 2018
